FAERS Safety Report 16507707 (Version 1)
Quarter: 2019Q3

REPORT INFORMATION
  Report Type: Other
  Country: GR (occurrence: GR)
  Receive Date: 20190702
  Receipt Date: 20190702
  Transmission Date: 20191004
  Serious: Yes (Life-Threatening, Hospitalization)
  Sender: FDA-Public Use
  Company Number: GR-FDC LIMITED-2070179

PATIENT
  Age: 37 Year
  Sex: Female

DRUGS (3)
  1. NETROMYCIN [Concomitant]
     Active Substance: NETILMICIN SULFATE
     Route: 065
  2. MEROPENEM. [Concomitant]
     Active Substance: MEROPENEM
     Route: 065
  3. CIPROFLOXACIN. [Suspect]
     Active Substance: CIPROFLOXACIN
     Indication: PYELONEPHRITIS ACUTE
     Route: 065

REACTIONS (6)
  - Respiratory failure [Recovered/Resolved]
  - Multiple organ dysfunction syndrome [Recovered/Resolved]
  - Drug resistance [Unknown]
  - Urosepsis [Recovered/Resolved]
  - Renal abscess [Recovered/Resolved]
  - Septic shock [Recovered/Resolved]
